FAERS Safety Report 17196148 (Version 1)
Quarter: 2019Q4

REPORT INFORMATION
  Report Type: Spontaneous
  Country: FR (occurrence: FR)
  Receive Date: 20191224
  Receipt Date: 20191224
  Transmission Date: 20200122
  Serious: Yes (Hospitalization, Other)
  Sender: FDA-Public Use
  Company Number: FR-SA-2019SA353673

PATIENT
  Age: 80 Year
  Sex: Male

DRUGS (4)
  1. PANTOPRAZOLE [Suspect]
     Active Substance: PANTOPRAZOLE
     Indication: PEPTIC ULCER
     Dosage: 80 MG, QD
     Route: 048
     Dates: start: 20190605, end: 20190619
  2. CLOXACILLIN [Suspect]
     Active Substance: CLOXACILLIN
     Indication: SEPTIC ARTHRITIS STAPHYLOCOCCAL
     Dosage: 12 G, QD
     Route: 041
     Dates: start: 20190606, end: 20190615
  3. RIFADINE [Suspect]
     Active Substance: RIFAMPIN
     Indication: SEPTIC ARTHRITIS STAPHYLOCOCCAL
     Dosage: 1200 MG, QD
     Route: 042
     Dates: start: 20190614, end: 20190615
  4. LEVOFLOXACIN. [Suspect]
     Active Substance: LEVOFLOXACIN
     Indication: SEPTIC ARTHRITIS STAPHYLOCOCCAL
     Dosage: 500 MG
     Route: 048
     Dates: start: 20190609, end: 20190615

REACTIONS (4)
  - Rash maculo-papular [Recovered/Resolved]
  - Acute kidney injury [Recovered/Resolved]
  - Pruritus [Recovered/Resolved]
  - Purpura [Recovered/Resolved]

NARRATIVE: CASE EVENT DATE: 20190614
